FAERS Safety Report 5515639-X (Version None)
Quarter: 2007Q4

REPORT INFORMATION
  Report Type: 
  Country: None (occurrence: None)
  Receive Date: 20071113
  Receipt Date: 20070719
  Transmission Date: 20080405
  Serious: No
  Sender: FDA-Public Use
  Company Number: A0665256A

PATIENT
  Age: 41 Year
  Sex: Female

DRUGS (6)
  1. COREG [Suspect]
     Dosage: 50MG PER DAY
     Route: 048
     Dates: start: 20040101, end: 20050101
  2. COREG CR [Suspect]
     Dosage: 80MG TWICE PER DAY
     Route: 048
     Dates: start: 20070621
  3. DIOVAN [Concomitant]
  4. LASIX [Concomitant]
  5. METAMIZOLE [Concomitant]
  6. POTASSIUM CHLORIDE [Concomitant]

REACTIONS (2)
  - MALAISE [None]
  - WEIGHT LOSS POOR [None]
